FAERS Safety Report 5384742-X (Version None)
Quarter: 2007Q3

REPORT INFORMATION
  Report Type: 
  Country: None (occurrence: None)
  Receive Date: 20070711
  Receipt Date: 20070702
  Transmission Date: 20080115
  Serious: Yes (Other)
  Sender: FDA-Public Use
  Company Number: US-PFIZER INC-2007054387

PATIENT
  Sex: Male
  Weight: 76.2 kg

DRUGS (5)
  1. LIPITOR [Suspect]
     Indication: BLOOD CHOLESTEROL INCREASED
  2. NARDIL [Concomitant]
  3. XANAX [Concomitant]
  4. ACIPHEX [Concomitant]
  5. CENTRUM SILVER [Concomitant]

REACTIONS (3)
  - GLUCOSE TOLERANCE IMPAIRED [None]
  - MYALGIA [None]
  - PARAESTHESIA [None]
